FAERS Safety Report 4360447-9 (Version None)
Quarter: 2004Q2

REPORT INFORMATION
  Report Type: 
  Country: None (occurrence: None)
  Receive Date: 20040514
  Receipt Date: 20040429
  Transmission Date: 20050107
  Serious: Yes (Life-Threatening, Hospitalization, Other)
  Sender: FDA-Public Use
  Company Number: 2004-DE-02396DE

PATIENT
  Sex: Female

DRUGS (1)
  1. MOBIC [Suspect]
     Indication: SCIATICA
     Dosage: 15 MG/1.,5 ML , IM
     Route: 030

REACTIONS (7)
  - HEADACHE [None]
  - HYPERHIDROSIS [None]
  - NAUSEA [None]
  - PAIN [None]
  - RETCHING [None]
  - SHOCK [None]
  - VISUAL DISTURBANCE [None]
